FAERS Safety Report 7842904-3 (Version None)
Quarter: 2011Q4

REPORT INFORMATION
  Report Type: 
  Country: None (occurrence: None)
  Receive Date: 20111025
  Receipt Date: 20111013
  Transmission Date: 20120403
  Serious: Yes (Death, Hospitalization)
  Sender: FDA-Public Use
  Company Number: ZA-PFIZER INC-ZA-WYE-H17776510

PATIENT
  Age: 76 Year
  Sex: Male
  Weight: 78 kg

DRUGS (13)
  1. TEMSIROLIMUS [Suspect]
     Dosage: 25 MG, 1X/WK
     Route: 042
  2. BEVACIZUMAB [Suspect]
     Indication: RENAL CELL CARCINOMA
     Dosage: 10 MG, 1X/2WK
     Route: 042
     Dates: start: 20100714, end: 20100927
  3. VALOID [Concomitant]
     Indication: NAUSEA
     Dosage: UNK
     Dates: start: 20100819
  4. PANADO [Concomitant]
     Dosage: UNK
     Dates: start: 20100725
  5. TEMSIROLIMUS [Suspect]
     Dosage: 25 MG, 1X/WK
     Route: 042
  6. ESSENTIALE [Concomitant]
     Indication: VITAMIN SUPPLEMENTATION
     Dosage: UNK
     Dates: start: 20100701
  7. ESPIRIDE [Concomitant]
     Indication: DEPRESSION
     Dosage: UNK
     Dates: start: 20090701
  8. TEMSIROLIMUS [Suspect]
     Indication: RENAL CELL CARCINOMA
     Dosage: 25 MG, 1X/WK
     Route: 042
     Dates: start: 20100714
  9. TEMSIROLIMUS [Suspect]
     Dosage: 25 MG, 1X/WK
     Route: 042
  10. TEMSIROLIMUS [Suspect]
     Dosage: 25 MG, 1X/WK
     Route: 042
  11. PANADO [Concomitant]
     Indication: PAIN
     Dosage: UNK
     Dates: start: 20100722
  12. TEMSIROLIMUS [Suspect]
     Dosage: 25 MG, 1X/WK
     Route: 042
     Dates: end: 20100927
  13. FERRIMED [Concomitant]
     Indication: VITAMIN SUPPLEMENTATION
     Dosage: UNK
     Dates: start: 20100701

REACTIONS (3)
  - BRONCHOPNEUMONIA [None]
  - VOMITING [None]
  - DEHYDRATION [None]
